FAERS Safety Report 17873579 (Version 1)
Quarter: 2020Q2

REPORT INFORMATION
  Report Type: Report from Study
  Country: TR (occurrence: TR)
  Receive Date: 20200609
  Receipt Date: 20200609
  Transmission Date: 20200714
  Serious: Yes (Other)
  Sender: FDA-Public Use
  Company Number: TR-ROCHE-2611643

PATIENT

DRUGS (2)
  1. TRASTUZUMAB EMTANSINE [Suspect]
     Active Substance: ADO-TRASTUZUMAB EMTANSINE
     Indication: HER2 POSITIVE BREAST CANCER
     Dosage: 3.6 MG T-DM1 PER KILOGRAM AND PUTTING THAT SOLUTION INTO AN INFUSION BAG CONTAINING 250 CC OF 0.9% N
     Route: 042
  2. SODIUM CHLORIDE. [Concomitant]
     Active Substance: SODIUM CHLORIDE
     Route: 042

REACTIONS (37)
  - Alanine aminotransferase increased [Unknown]
  - Leukopenia [Unknown]
  - Pyrexia [Unknown]
  - Abdominal pain [Unknown]
  - Dyspnoea [Unknown]
  - Hypertension [Unknown]
  - Acute myeloid leukaemia [Unknown]
  - Vomiting [Unknown]
  - Stomatitis [Unknown]
  - Anaemia [Unknown]
  - Pulmonary toxicity [Unknown]
  - Neuropathy peripheral [Unknown]
  - Dry eye [Unknown]
  - Dyspepsia [Unknown]
  - Urinary tract infection [Unknown]
  - Vision blurred [Unknown]
  - Lacrimation increased [Unknown]
  - Thrombocytopenia [Unknown]
  - Fatigue [Unknown]
  - Constipation [Unknown]
  - Epistaxis [Unknown]
  - Blood bilirubin increased [Unknown]
  - Insomnia [Unknown]
  - Pruritus [Unknown]
  - Nausea [Unknown]
  - Cough [Unknown]
  - Headache [Unknown]
  - Arthralgia [Unknown]
  - Conjunctivitis [Unknown]
  - Hypokalaemia [Unknown]
  - Rash [Unknown]
  - Blood alkaline phosphatase increased [Unknown]
  - Diarrhoea [Unknown]
  - Aspartate aminotransferase increased [Unknown]
  - Myalgia [Unknown]
  - Oedema peripheral [Unknown]
  - Hypersensitivity [Unknown]
